FAERS Safety Report 19725775 (Version 1)
Quarter: 2021Q3

REPORT INFORMATION
  Report Type: Spontaneous
  Country: US (occurrence: US)
  Receive Date: 20210819
  Receipt Date: 20210819
  Transmission Date: 20211014
  Serious: Yes (Hospitalization)
  Sender: FDA-Public Use
  Company Number: None

PATIENT
  Sex: Female
  Weight: 111.8 kg

DRUGS (2)
  1. CYTARABINE. [Suspect]
     Active Substance: CYTARABINE
  2. DAUNORUBICIN [Concomitant]
     Active Substance: DAUNORUBICIN

REACTIONS (5)
  - Cough [None]
  - Fatigue [None]
  - Pyrexia [None]
  - Dyspnoea [None]
  - COVID-19 [None]

NARRATIVE: CASE EVENT DATE: 20210813
